FAERS Safety Report 10919503 (Version 1)
Quarter: 2015Q1

REPORT INFORMATION
  Report Type: Report from Study
  Country: AU (occurrence: AU)
  Receive Date: 20150316
  Receipt Date: 20150316
  Transmission Date: 20150721
  Serious: Yes (Other)
  Sender: FDA-Public Use
  Company Number: AU-ROCHE-1437833

PATIENT
  Age: 66 Year
  Sex: Female
  Weight: 73 kg

DRUGS (3)
  1. ACTEMRA [Suspect]
     Active Substance: TOCILIZUMAB
     Indication: RHEUMATOID ARTHRITIS
     Route: 042
     Dates: start: 20140108
  2. ACTEMRA [Suspect]
     Active Substance: TOCILIZUMAB
     Dosage: 4MG/KG
     Route: 042
     Dates: start: 20150227
  3. ACTEMRA [Suspect]
     Active Substance: TOCILIZUMAB
     Dosage: 6MG/KG
     Route: 042
     Dates: start: 20140716

REACTIONS (3)
  - Rheumatoid arthritis [Unknown]
  - Rash macular [Unknown]
  - Neutropenia [Unknown]

NARRATIVE: CASE EVENT DATE: 201412
